FAERS Safety Report 17172727 (Version 1)
Quarter: 2019Q4

REPORT INFORMATION
  Report Type: Spontaneous
  Country: US (occurrence: US)
  Receive Date: 20191218
  Receipt Date: 20191218
  Transmission Date: 20200122
  Serious: No
  Sender: FDA-Public Use
  Company Number: US-TEVA-2019-US-1154080

PATIENT
  Sex: Female

DRUGS (3)
  1. BUPRENORPHINE TRANSDERMAL PATCH TEVA [Suspect]
     Active Substance: BUPRENORPHINE
     Indication: PAIN
     Dosage: FORM STRENGTH: 20 MCG / HR
     Route: 062
  2. BUPRENORPHINE TRANSDERMAL PATCH TEVA [Suspect]
     Active Substance: BUPRENORPHINE
     Indication: FIBROMYALGIA
  3. BUPRENORPHINE TRANSDERMAL PATCH TEVA [Suspect]
     Active Substance: BUPRENORPHINE
     Indication: COMPLEX REGIONAL PAIN SYNDROME

REACTIONS (5)
  - Stress [Not Recovered/Not Resolved]
  - Product substitution issue [Unknown]
  - Chest pain [Not Recovered/Not Resolved]
  - Hyperhidrosis [Not Recovered/Not Resolved]
  - Breakthrough pain [Not Recovered/Not Resolved]
